FAERS Safety Report 10780832 (Version 11)
Quarter: 2016Q2

REPORT INFORMATION
  Report Type: Report from Study
  Country: CN (occurrence: CN)
  Receive Date: 20150210
  Receipt Date: 20160502
  Transmission Date: 20160815
  Serious: Yes (Life-Threatening, Hospitalization)
  Sender: FDA-Public Use
  Company Number: CN-AMGEN-CHNCT2014101239

PATIENT
  Age: 68 Year
  Sex: Female
  Weight: 40 kg

DRUGS (13)
  1. MELPHALAN [Suspect]
     Active Substance: MELPHALAN
     Indication: PLASMA CELL MYELOMA
     Dosage: 8 MG, PER CHEMO REGIM
     Route: 048
     Dates: start: 20141215, end: 20141218
  2. GRANULOCYTE COLONY STIMULATING FACTOR [Concomitant]
     Active Substance: GRANULOCYTE COLONY-STIMULATING FACTOR NOS
     Indication: LEUKOPENIA
     Dosage: 150 MUG, UNK
     Route: 042
     Dates: start: 20141222, end: 20150104
  3. IBUPROFEN. [Concomitant]
     Active Substance: IBUPROFEN
     Indication: PYREXIA
     Dosage: 15 ML, UNK
     Route: 048
     Dates: start: 20141223, end: 20150117
  4. IPRATROPIUM BROMIDE. [Concomitant]
     Active Substance: IPRATROPIUM BROMIDE
     Indication: LUNG INFECTION
     Dosage: 1.5 MG, TID
     Route: 055
     Dates: start: 20141225, end: 20141226
  5. TARGOCID [Concomitant]
     Active Substance: TEICOPLANIN
     Indication: LUNG INFECTION
     Dosage: 0.4 G, QD
     Route: 042
     Dates: start: 20141225, end: 20150104
  6. VORICONAZOLE. [Concomitant]
     Active Substance: VORICONAZOLE
     Indication: LUNG INFECTION
     Dosage: 0.4 G, BID
     Route: 042
     Dates: start: 20141225, end: 20150108
  7. GRANULOCYTE COLONY STIMULATING FACTOR [Concomitant]
     Active Substance: GRANULOCYTE COLONY-STIMULATING FACTOR NOS
     Indication: NEUTROPENIA
  8. TIENAM [Concomitant]
     Active Substance: CILASTATIN SODIUM\IMIPENEM
     Indication: LUNG INFECTION
     Dosage: 2 G, QID
     Route: 042
     Dates: start: 20141223, end: 20141230
  9. TRIMETAZIDINE [Concomitant]
     Active Substance: TRIMETAZIDINE
     Indication: CARDIAC FAILURE
     Dosage: 60 MG, TID
     Route: 048
     Dates: start: 20141216, end: 20141226
  10. TROPISETRON [Concomitant]
     Active Substance: TROPISETRON
     Indication: PROPHYLAXIS
     Dosage: 5 MG, QD
     Route: 042
     Dates: start: 20141216, end: 20141224
  11. MYRTOL [Concomitant]
     Active Substance: HERBALS
     Indication: LUNG INFECTION
     Dosage: 0.9 G, TID
     Route: 048
     Dates: start: 20141225, end: 20141226
  12. CARFILZOMIB [Suspect]
     Active Substance: CARFILZOMIB
     Indication: PLASMA CELL MYELOMA
     Dosage: 27 MG/M2, PER CHEMO REGIM
     Route: 042
     Dates: start: 20141215
  13. PREDNISONE. [Suspect]
     Active Substance: PREDNISONE
     Indication: PLASMA CELL MYELOMA
     Dosage: 80 MG, PER CHEMO REGIM
     Route: 048
     Dates: start: 20141215, end: 20141218

REACTIONS (4)
  - Acute left ventricular failure [Recovered/Resolved]
  - Renal failure [Recovered/Resolved]
  - Pneumonia [Recovered/Resolved]
  - Acute left ventricular failure [Recovered/Resolved]

NARRATIVE: CASE EVENT DATE: 20141226
